FAERS Safety Report 7982420-1 (Version None)
Quarter: 2011Q4

REPORT INFORMATION
  Report Type: 
  Country: None (occurrence: None)
  Receive Date: 20111215
  Receipt Date: 20111208
  Transmission Date: 20120403
  Serious: Yes (Other)
  Sender: FDA-Public Use
  Company Number: PHHO2011CA020640

PATIENT
  Sex: Male
  Weight: 108.84 kg

DRUGS (1)
  1. GILENYA [Suspect]
     Indication: MULTIPLE SCLEROSIS

REACTIONS (1)
  - SQUAMOUS CELL CARCINOMA [None]
